FAERS Safety Report 18192322 (Version 1)
Quarter: 2020Q3

REPORT INFORMATION
  Report Type: Spontaneous
  Country: US (occurrence: US)
  Receive Date: 20200825
  Receipt Date: 20200825
  Transmission Date: 20201103
  Serious: Yes (Hospitalization)
  Sender: FDA-Public Use
  Company Number: None

PATIENT
  Age: 48 Year
  Sex: Female

DRUGS (10)
  1. ASPIRIN. [Concomitant]
     Active Substance: ASPIRIN
  2. FOLIC ACID. [Concomitant]
     Active Substance: FOLIC ACID
  3. METHOTREXATE. [Concomitant]
     Active Substance: METHOTREXATE
  4. SINGULAIR [Concomitant]
     Active Substance: MONTELUKAST SODIUM
  5. LEUCOVOR [Concomitant]
  6. IBUPROFEN. [Concomitant]
     Active Substance: IBUPROFEN
  7. PEPCID [Concomitant]
     Active Substance: FAMOTIDINE
  8. VITAMIN D [Concomitant]
     Active Substance: VITAMIN D NOS
  9. COSENTYX [Suspect]
     Active Substance: SECUKINUMAB
     Indication: PSORIATIC ARTHROPATHY
     Dosage: ?          OTHER FREQUENCY:ONCE A MONTH;?
     Route: 058
  10. LEVOTHYROXINE. [Concomitant]
     Active Substance: LEVOTHYROXINE

REACTIONS (2)
  - Product dose omission issue [None]
  - Nasopharyngitis [None]

NARRATIVE: CASE EVENT DATE: 20200824
